FAERS Safety Report 18725305 (Version 1)
Quarter: 2021Q1

REPORT INFORMATION
  Report Type: Report from Study
  Country: US (occurrence: US)
  Receive Date: 20210111
  Receipt Date: 20210111
  Transmission Date: 20210419
  Serious: Yes (Hospitalization)
  Sender: FDA-Public Use
  Company Number: US-EISAI MEDICAL RESEARCH-EC-2021-086298

PATIENT
  Age: 64 Year
  Sex: Male
  Weight: 68 kg

DRUGS (10)
  1. CALCITRIOL. [Concomitant]
     Active Substance: CALCITRIOL
  2. METOPROLOL. [Concomitant]
     Active Substance: METOPROLOL
  3. MESALAMINE. [Concomitant]
     Active Substance: MESALAMINE
  4. CALCIUM CARBONATE. [Concomitant]
     Active Substance: CALCIUM CARBONATE
  5. LISINOPRIL. [Concomitant]
     Active Substance: LISINOPRIL
  6. MULTIVITAMINS [Concomitant]
     Active Substance: VITAMINS
  7. LOSARTAN. [Concomitant]
     Active Substance: LOSARTAN
  8. LEVOTHYROXINE. [Concomitant]
     Active Substance: LEVOTHYROXINE
  9. METHYLPREDNISOLONE. [Concomitant]
     Active Substance: METHYLPREDNISOLONE
  10. LENVIMA [Suspect]
     Active Substance: LENVATINIB
     Indication: THYROID CANCER METASTATIC
     Route: 048
     Dates: start: 20200404, end: 2020

REACTIONS (1)
  - Appendicitis perforated [Unknown]

NARRATIVE: CASE EVENT DATE: 2020
